FAERS Safety Report 9071177 (Version 2)
Quarter: 2013Q1

REPORT INFORMATION
  Report Type: Report from Study
  Country: JP (occurrence: JP)
  Receive Date: 20130129
  Receipt Date: 20130307
  Transmission Date: 20140127
  Serious: Yes (Hospitalization)
  Sender: FDA-Public Use
  Company Number: JP-ASTELLAS-2013JP000177

PATIENT
  Age: 70 None
  Sex: Male
  Weight: 66 kg

DRUGS (5)
  1. MIRABEGRON [Suspect]
     Indication: HYPERTONIC BLADDER
     Dosage: 50 MG, UID/QD
     Route: 048
     Dates: start: 20121107
  2. STAYBLA [Concomitant]
     Indication: HYPERTONIC BLADDER
     Dosage: 0.2 MG, UNKNOWN/D
     Route: 048
     Dates: end: 20121106
  3. LENDORMIN [Concomitant]
     Indication: INSOMNIA
     Dosage: 0.25 MG, UID/QD
     Route: 048
     Dates: end: 20121121
  4. ALINAMIN F                         /00257801/ [Concomitant]
     Indication: VITAMIN B1 DEFICIENCY
     Dosage: 75 MG, UNKNOWN/D
     Route: 048
     Dates: end: 20121121
  5. FLIVAS [Concomitant]
     Indication: BENIGN PROSTATIC HYPERPLASIA
     Dosage: 50 MG, UNKNOWN/D
     Route: 048
     Dates: end: 20121121

REACTIONS (1)
  - Spinal cord injury [Not Recovered/Not Resolved]
